FAERS Safety Report 8318009-4 (Version None)
Quarter: 2012Q2

REPORT INFORMATION
  Report Type: 
  Country: None (occurrence: None)
  Receive Date: 20120427
  Receipt Date: 20120423
  Transmission Date: 20120825
  Serious: No
  Sender: FDA-Public Use
  Company Number: US-PFIZER INC-2012102018

PATIENT
  Sex: Female

DRUGS (4)
  1. PERCOCET [Suspect]
     Dosage: UNK
  2. LEVAQUIN [Suspect]
     Dosage: UNK
  3. MORPHINE SULFATE [Suspect]
     Dosage: UNK
  4. CODEINE [Suspect]
     Dosage: UNK

REACTIONS (1)
  - DRUG HYPERSENSITIVITY [None]
